FAERS Safety Report 6552928-4 (Version None)
Quarter: 2010Q1

REPORT INFORMATION
  Report Type: 
  Country: None (occurrence: None)
  Receive Date: 20100122
  Receipt Date: 20100111
  Transmission Date: 20100710
  Serious: Yes (Other)
  Sender: FDA-Public Use
  Company Number: 1000011162

PATIENT
  Age: 22 Year
  Sex: Female

DRUGS (1)
  1. LEXAPRO [Suspect]
     Indication: ANXIETY
     Dosage: 5 MG (5 MG,1 IN 1 D),ORAL
     Route: 048
     Dates: start: 20091217, end: 20091219

REACTIONS (3)
  - BRADYCARDIA [None]
  - CHEST PAIN [None]
  - DYSPNOEA [None]
